FAERS Safety Report 9556038 (Version 1)
Quarter: 2013Q3

REPORT INFORMATION
  Report Type: Spontaneous
  Country: US (occurrence: US)
  Receive Date: 20130926
  Receipt Date: 20130926
  Transmission Date: 20140515
  Serious: No
  Sender: FDA-Public Use
  Company Number: US-UPSHER-SMITH LABORATORIES, INC.-12001873

PATIENT
  Age: 79 Year
  Sex: Female

DRUGS (8)
  1. FORTICAL [Suspect]
     Indication: OSTEOPOROSIS
     Dosage: 200 IU, QD
     Route: 045
     Dates: start: 20120713
  2. LIPITOR [Concomitant]
     Dosage: UNK
  3. POTASSIUM [Concomitant]
     Dosage: UNK
  4. ZOCOR [Concomitant]
     Dosage: UNK
  5. ZOLOFT                             /01011401/ [Concomitant]
     Dosage: UNK
  6. TRIAMTERENE [Concomitant]
     Dosage: UNK
  7. PLAQUENIL                          /00072601/ [Concomitant]
     Dosage: UNK
  8. MULTIVITAMIN                       /01229101/ [Concomitant]
     Dosage: UNK

REACTIONS (1)
  - Nasal discomfort [Not Recovered/Not Resolved]
